FAERS Safety Report 23207711 (Version 1)
Quarter: 2023Q4

REPORT INFORMATION
  Report Type: Report from Study
  Country: US (occurrence: US)
  Receive Date: 20231120
  Receipt Date: 20231120
  Transmission Date: 20240110
  Serious: No
  Sender: FDA-Public Use
  Company Number: US-drreddys-SPO/USA/23/0180032

PATIENT
  Age: 6 Month
  Sex: Female
  Weight: 7 kg

DRUGS (1)
  1. SAPROPTERIN DIHYDROCHLORIDE [Suspect]
     Active Substance: SAPROPTERIN DIHYDROCHLORIDE
     Indication: Hyperphenylalaninaemia
     Dosage: MIX TWO 100 MG PACKETS WITH 20 ML OF WATER. USING A SYRINGE DRAW UP 15 ML AND GIVE ORALLY. DISPOSE O
     Route: 048

REACTIONS (2)
  - Drug intolerance [Unknown]
  - Product physical consistency issue [Unknown]
